FAERS Safety Report 12172757 (Version 2)
Quarter: 2016Q1

REPORT INFORMATION
  Report Type: Spontaneous
  Country: US (occurrence: US)
  Receive Date: 20160311
  Receipt Date: 20160321
  Transmission Date: 20160526
  Serious: Yes (Other)
  Sender: FDA-Public Use
  Company Number: US-ASTELLAS-2016US008920

PATIENT
  Age: 55 Year
  Sex: Female

DRUGS (1)
  1. REGADENOSON [Suspect]
     Active Substance: REGADENOSON
     Indication: SCAN MYOCARDIAL PERFUSION
     Dosage: UNK UNK, UNKNOWN FREQ.
     Route: 065

REACTIONS (5)
  - Ejection fraction decreased [Recovered/Resolved]
  - Coronary artery stenosis [Recovered/Resolved]
  - Myocardial ischaemia [Recovered/Resolved]
  - Heart rate irregular [Recovered/Resolved]
  - Ventricular dyssynchrony [Recovered/Resolved]
